FAERS Safety Report 8065576-4 (Version None)
Quarter: 2012Q1

REPORT INFORMATION
  Report Type: 
  Country: None (occurrence: None)
  Receive Date: 20120124
  Receipt Date: 20120110
  Transmission Date: 20120608
  Serious: Yes (Hospitalization)
  Sender: FDA-Public Use
  Company Number: NL-MYLANLABS-2012S1000690

PATIENT
  Age: 87 Year
  Sex: Female
  Weight: 69 kg

DRUGS (3)
  1. PANTOPRAZOLE [Suspect]
     Indication: PROPHYLAXIS AGAINST GASTROINTESTINAL ULCER
     Dosage: 1D1
     Route: 048
     Dates: start: 20080101, end: 20111130
  2. SINEMET [Suspect]
     Indication: PARKINSON'S DISEASE
     Dosage: 4D1
     Route: 048
     Dates: start: 20110901, end: 20111217
  3. CETIRIZINE [Concomitant]
     Indication: PRODUCT USED FOR UNKNOWN INDICATION
     Route: 048
     Dates: start: 20111101, end: 20111201

REACTIONS (2)
  - TOXIC SKIN ERUPTION [None]
  - LICHENOID KERATOSIS [None]
